FAERS Safety Report 7249177-3 (Version None)
Quarter: 2011Q1

REPORT INFORMATION
  Report Type: 
  Country: None (occurrence: None)
  Receive Date: 20110128
  Receipt Date: 20110118
  Transmission Date: 20110831
  Serious: Yes (Hospitalization)
  Sender: FDA-Public Use
  Company Number: JP-JNJFOC-20101204403

PATIENT
  Sex: Male

DRUGS (16)
  1. KETAS [Concomitant]
     Indication: ILL-DEFINED DISORDER
     Route: 048
  2. MUCOSOLVAN [Concomitant]
     Indication: ILL-DEFINED DISORDER
     Route: 048
  3. SIGMART [Concomitant]
     Indication: ILL-DEFINED DISORDER
     Route: 048
  4. TEGRETOL [Concomitant]
     Indication: ILL-DEFINED DISORDER
     Route: 065
  5. LASIX [Concomitant]
     Indication: ILL-DEFINED DISORDER
     Route: 048
  6. AMLODIN OD [Concomitant]
     Indication: ILL-DEFINED DISORDER
     Route: 048
  7. TOPIRAMATE [Suspect]
     Indication: EPILEPSY
     Route: 048
  8. ASPIRIN [Concomitant]
     Indication: ILL-DEFINED DISORDER
     Route: 048
  9. DEPAKENE [Suspect]
     Indication: EPILEPSY
     Route: 048
  10. ANTIEPILEPTIC, NOT SPECIFIED [Suspect]
     Indication: EPILEPSY
     Route: 065
  11. ZONISAMIDE [Concomitant]
     Indication: ILL-DEFINED DISORDER
     Route: 065
  12. GASTER D [Concomitant]
     Indication: ILL-DEFINED DISORDER
     Route: 065
  13. TOPIRAMATE [Suspect]
     Route: 048
  14. DEPAKENE [Suspect]
     Route: 048
  15. DIOVAN [Concomitant]
     Indication: ILL-DEFINED DISORDER
     Route: 048
  16. URSO 250 [Concomitant]
     Indication: ILL-DEFINED DISORDER
     Route: 048

REACTIONS (1)
  - HYPERAMMONAEMIC ENCEPHALOPATHY [None]
